FAERS Safety Report 5479354-3 (Version None)
Quarter: 2007Q4

REPORT INFORMATION
  Report Type: 
  Country: None (occurrence: None)
  Receive Date: 20071003
  Receipt Date: 20071003
  Transmission Date: 20080405
  Serious: Yes (Hospitalization)
  Sender: FDA-Public Use
  Company Number: None

PATIENT
  Age: 57 Year
  Sex: Male
  Weight: 75.7507 kg

DRUGS (1)
  1. LAMIVUDINE + ZIDOVUDINE [Suspect]
     Indication: HIV INFECTION
     Dosage: 150/300MG BID PO
     Route: 048
     Dates: start: 20060918, end: 20070630

REACTIONS (1)
  - ANAEMIA [None]
